FAERS Safety Report 6236293-8 (Version None)
Quarter: 2009Q2

REPORT INFORMATION
  Report Type: 
  Country: None (occurrence: None)
  Receive Date: 20090619
  Receipt Date: 20090612
  Transmission Date: 20091009
  Serious: Yes (Hospitalization, Other)
  Sender: FDA-Public Use
  Company Number: US-ROCHE-635524

PATIENT
  Sex: Female
  Weight: 82.6 kg

DRUGS (1)
  1. CAPECITABINE [Suspect]
     Indication: COLORECTAL CANCER
     Dosage: DOSE: 3 TABLETS BID, ROUTE: MOUTH
     Route: 048
     Dates: start: 20081230, end: 20090524

REACTIONS (3)
  - ABDOMINAL PAIN UPPER [None]
  - MALIGNANT NEOPLASM PROGRESSION [None]
  - PYREXIA [None]
